FAERS Safety Report 12364509 (Version 6)
Quarter: 2017Q2

REPORT INFORMATION
  Report Type: Report from Study
  Country: None (occurrence: AU)
  Receive Date: 20160512
  Receipt Date: 20170517
  Transmission Date: 20170830
  Serious: Yes (Hospitalization)
  Sender: FDA-Public Use
  Company Number: AU-ABBVIE-15P-008-1514919-00

PATIENT
  Age: 36 Year
  Sex: Male
  Weight: 80.3 kg

DRUGS (8)
  1. DOXYCYCLINE. [Concomitant]
     Active Substance: DOXYCYCLINE
     Indication: COUGH
     Dates: start: 20150618
  2. RITUXIMAB [Suspect]
     Active Substance: RITUXIMAB
     Indication: NON-HODGKIN^S LYMPHOMA
     Dosage: DAY 1 OF EACH 28 DAY CYCLE; MOST RECENT DOSE PRIOR TO THE EVENT ON 05 NOV 2015
     Route: 042
     Dates: start: 20150514
  3. CITRIZINE [Concomitant]
     Indication: RASH
     Dates: start: 20150910
  4. NOVASONE CREAM [Concomitant]
     Indication: RASH
     Dates: start: 20150910
  5. PREDNISOLONE. [Concomitant]
     Active Substance: PREDNISOLONE
     Indication: RASH
     Dates: start: 20150910
  6. VENETOCLAX [Suspect]
     Active Substance: VENETOCLAX
     Indication: NON-HODGKIN^S LYMPHOMA
     Dosage: MOST RECENT DOSE PRIOR TO THE EVENT WAS ON 03 DEC 2015
     Route: 048
     Dates: start: 20150514
  7. ESOMEPRAZOLE [Concomitant]
     Active Substance: ESOMEPRAZOLE
     Indication: ABDOMINAL DISCOMFORT
     Dates: start: 20150618
  8. BENDAMUSTINE [Suspect]
     Active Substance: BENDAMUSTINE
     Indication: NON-HODGKIN^S LYMPHOMA
     Dosage: DAY 1 AND 2 OF EACH 28 DAY CYCLE; MOST RECENT DOSE PRIOR TO THE EVENT WAS ON 06 NOV 2015
     Route: 042
     Dates: start: 20150514

REACTIONS (2)
  - Thrombocytopenia [Recovered/Resolved]
  - Febrile neutropenia [Recovered/Resolved]

NARRATIVE: CASE EVENT DATE: 20151206
